FAERS Safety Report 4340486-4 (Version None)
Quarter: 2004Q2

REPORT INFORMATION
  Report Type: 
  Country: None (occurrence: None)
  Receive Date: 20040414
  Receipt Date: 20040402
  Transmission Date: 20050107
  Serious: Yes (Other)
  Sender: FDA-Public Use
  Company Number: 2004207884GB

PATIENT
  Sex: 0

DRUGS (1)
  1. AZULFIDINE [Suspect]
     Indication: COLITIS
     Dosage: 500 MG/DAY

REACTIONS (1)
  - CEREBROVASCULAR ACCIDENT [None]
